FAERS Safety Report 7727051-3 (Version None)
Quarter: 2011Q3

REPORT INFORMATION
  Report Type: 
  Country: None (occurrence: None)
  Receive Date: 20110902
  Receipt Date: 20110829
  Transmission Date: 20111222
  Serious: Yes (Other)
  Sender: FDA-Public Use
  Company Number: US-ABBOTT-11P-163-0850571-00

PATIENT
  Sex: Female
  Weight: 81.72 kg

DRUGS (5)
  1. HUMIRA [Suspect]
     Indication: PSORIASIS
     Dates: start: 20090101, end: 20101201
  2. INSULIN [Concomitant]
     Indication: DIABETES MELLITUS
  3. LOVENOX [Concomitant]
     Indication: FACTOR II MUTATION
  4. FOLIC ACID [Concomitant]
     Indication: SUPPLEMENTATION THERAPY
  5. SYNTHROID [Concomitant]
     Indication: HYPOTHYROIDISM

REACTIONS (4)
  - PRE-ECLAMPSIA [None]
  - HYPERTENSION [None]
  - PREMATURE DELIVERY [None]
  - POLYHYDRAMNIOS [None]
